FAERS Safety Report 7963155-8 (Version None)
Quarter: 2011Q4

REPORT INFORMATION
  Report Type: 
  Country: None (occurrence: None)
  Receive Date: 20111207
  Receipt Date: 20101028
  Transmission Date: 20120403
  Serious: Yes (Hospitalization)
  Sender: FDA-Public Use
  Company Number: PHHY2011TR72125

PATIENT
  Age: 4 Hour
  Sex: Male
  Weight: 3.7 kg

DRUGS (2)
  1. VITAMIN K TAB [Suspect]
  2. METHERGINE [Suspect]
     Dosage: 0.2 MG, UNK
     Route: 030

REACTIONS (14)
  - TONIC CONVULSION [None]
  - APPETITE DISORDER [None]
  - OLIGURIA [None]
  - CYANOSIS NEONATAL [None]
  - APNOEA [None]
  - PERIPHERAL VASCULAR DISORDER [None]
  - HYPOTENSION [None]
  - NEONATAL HYPOTENSION [None]
  - INFANTILE APNOEIC ATTACK [None]
  - HYPOXIA [None]
  - RENAL IMPAIRMENT [None]
  - WRONG DRUG ADMINISTERED [None]
  - NEONATAL HYPOXIA [None]
  - CYANOSIS [None]
